FAERS Safety Report 10268807 (Version 4)
Quarter: 2015Q2

REPORT INFORMATION
  Report Type: Spontaneous
  Country: US (occurrence: US)
  Receive Date: 20140630
  Receipt Date: 20150625
  Transmission Date: 20150821
  Serious: Yes (Hospitalization, Other)
  Sender: FDA-Public Use
  Company Number: US-GLAXOSMITHKLINE-A1078422A

PATIENT
  Age: 76 Year
  Sex: Female

DRUGS (2)
  1. ADVAIR HFA [Suspect]
     Active Substance: FLUTICASONE PROPIONATE\SALMETEROL XINAFOATE
     Indication: CHRONIC OBSTRUCTIVE PULMONARY DISEASE
     Dosage: 1 PUFF(S), BID
     Route: 055
     Dates: start: 20111216
  2. ADVAIR HFA [Suspect]
     Active Substance: FLUTICASONE PROPIONATE\SALMETEROL XINAFOATE
     Indication: ASTHMA
     Dosage: UNK

REACTIONS (18)
  - Myocardial infarction [Unknown]
  - Cardiac disorder [Unknown]
  - Asthenia [Unknown]
  - Memory impairment [Unknown]
  - Lung infection [Unknown]
  - Joint injury [Unknown]
  - Limb injury [Unknown]
  - Thyroid hormones increased [Unknown]
  - Atrial fibrillation [Unknown]
  - Pain in jaw [Unknown]
  - Fall [Unknown]
  - Cardiac discomfort [Unknown]
  - Tremor [Unknown]
  - Mental impairment [Unknown]
  - Chest discomfort [Unknown]
  - Haemoglobin decreased [Unknown]
  - Dry eye [Unknown]
  - Malaise [Unknown]

NARRATIVE: CASE EVENT DATE: 2013
